FAERS Safety Report 12708571 (Version 1)
Quarter: 2016Q3

REPORT INFORMATION
  Report Type: Report from Study
  Country: BR (occurrence: BR)
  Receive Date: 20160901
  Receipt Date: 20160901
  Transmission Date: 20161109
  Serious: Yes (Other)
  Sender: FDA-Public Use
  Company Number: BR-BAYER-2016-165058

PATIENT
  Sex: Female

DRUGS (4)
  1. BETAFERON [Suspect]
     Active Substance: INTERFERON BETA-1B
     Indication: MULTIPLE SCLEROSIS
     Dosage: 1 MG, QOD
     Dates: start: 20160816
  2. GINKGO BILOBA [Concomitant]
     Active Substance: GINKGO
     Indication: LABYRINTHITIS
  3. BETAFERON [Suspect]
     Active Substance: INTERFERON BETA-1B
     Indication: MULTIPLE SCLEROSIS
     Dosage: 1 MG, QOD
     Dates: start: 201112, end: 201606
  4. GINKGO BILOBA [Concomitant]
     Active Substance: GINKGO
     Indication: MEMORY IMPAIRMENT
     Dosage: 1 DF, UNSPECIFIED FREQUENCY
     Route: 048
     Dates: start: 201508

REACTIONS (11)
  - Helicobacter gastritis [Recovering/Resolving]
  - Dyspepsia [Recovering/Resolving]
  - Nausea [Recovering/Resolving]
  - Vomiting [Recovering/Resolving]
  - Blood triglycerides abnormal [Recovered/Resolved]
  - Product use issue [None]
  - Thyroid disorder [Recovering/Resolving]
  - Gastric disorder [None]
  - Blood pressure abnormal [Recovering/Resolving]
  - Blood triglycerides abnormal [Recovering/Resolving]
  - Diabetes mellitus [Recovering/Resolving]

NARRATIVE: CASE EVENT DATE: 2011
